FAERS Safety Report 10080809 (Version 1)
Quarter: 2014Q2

REPORT INFORMATION
  Report Type: Spontaneous
  Country: US (occurrence: US)
  Receive Date: 20140416
  Receipt Date: 20140416
  Transmission Date: 20141212
  Serious: Yes (Hospitalization)
  Sender: FDA-Public Use
  Company Number: US-JNJFOC-20140406691

PATIENT
  Age: 49 Year
  Sex: Female
  Weight: 110.68 kg

DRUGS (13)
  1. FLEXERIL [Concomitant]
     Indication: MUSCLE SPASMS
     Route: 065
  2. FEXOFENADINE [Concomitant]
     Indication: HYPERSENSITIVITY
     Route: 065
  3. REMICADE [Suspect]
     Indication: RECTAL HAEMORRHAGE
     Route: 042
     Dates: start: 2011, end: 201305
  4. REMICADE [Suspect]
     Indication: RECTAL HAEMORRHAGE
     Route: 042
     Dates: start: 201310, end: 2013
  5. REMICADE [Suspect]
     Indication: COLITIS ULCERATIVE
     Route: 042
     Dates: start: 2011, end: 201305
  6. REMICADE [Suspect]
     Indication: COLITIS ULCERATIVE
     Route: 042
     Dates: start: 201310, end: 2013
  7. HUMIRA [Suspect]
     Indication: COLITIS ULCERATIVE
     Route: 065
     Dates: start: 201305, end: 201305
  8. HUMIRA [Suspect]
     Indication: COLITIS ULCERATIVE
     Route: 065
     Dates: start: 201310, end: 2013
  9. HUMIRA [Suspect]
     Indication: COLITIS ULCERATIVE
     Dosage: WEEK 1
     Route: 065
     Dates: start: 2013, end: 2013
  10. HUMIRA [Suspect]
     Indication: COLITIS ULCERATIVE
     Dosage: WEEK 2
     Route: 065
     Dates: start: 2013, end: 201310
  11. STEROIDS NOS [Suspect]
     Indication: RECTAL HAEMORRHAGE
     Route: 042
     Dates: start: 201310, end: 201310
  12. PROBIOTIC [Concomitant]
     Indication: COLITIS ULCERATIVE
     Route: 065
  13. TRAZODON [Concomitant]
     Indication: INSOMNIA
     Route: 065

REACTIONS (7)
  - Loss of consciousness [Recovered/Resolved]
  - Blood glucose increased [Recovered/Resolved]
  - Depression [Unknown]
  - Drug ineffective [Unknown]
  - Oral herpes [Unknown]
  - Pyrexia [Recovered/Resolved]
  - Alopecia [Unknown]
